FAERS Safety Report 14639192 (Version 1)
Quarter: 2018Q1

REPORT INFORMATION
  Report Type: Spontaneous
  Country: US (occurrence: US)
  Receive Date: 20180315
  Receipt Date: 20180315
  Transmission Date: 20180509
  Serious: No
  Sender: FDA-Public Use
  Company Number: US-ENDO PHARMACEUTICALS INC-2018-014302

PATIENT
  Sex: Female

DRUGS (1)
  1. HYDROCORTISONE CREAM .025 [Suspect]
     Active Substance: HYDROCORTISONE
     Indication: PRODUCT USED FOR UNKNOWN INDICATION
     Dosage: UNK UNKNOWN, UNKNOWN
     Route: 061

REACTIONS (9)
  - Dysmenorrhoea [Recovered/Resolved]
  - Headache [Recovered/Resolved]
  - Condition aggravated [Unknown]
  - Stress [Unknown]
  - Feeling hot [Unknown]
  - Loss of personal independence in daily activities [Unknown]
  - Malaise [Unknown]
  - Unevaluable event [Unknown]
  - Nausea [Unknown]
